FAERS Safety Report 16002884 (Version 1)
Quarter: 2019Q1

REPORT INFORMATION
  Report Type: Spontaneous
  Country: US (occurrence: US)
  Receive Date: 20190225
  Receipt Date: 20190225
  Transmission Date: 20190418
  Serious: No
  Sender: FDA-Public Use
  Company Number: US-SA-2019SA050178

PATIENT
  Sex: Female
  Weight: 58.97 kg

DRUGS (3)
  1. OXYCODONE AND ACETAMINOPHEN [Suspect]
     Active Substance: ACETAMINOPHEN\OXYCODONE HYDROCHLORIDE
     Dosage: 5/325MG TABLET TAKEN BY MOUTH DAILY
     Route: 048
  2. ACETYLSALICYLIC ACID [Suspect]
     Active Substance: ASPIRIN
     Dosage: TAKEN BY MOUTH DAILY
     Route: 048
  3. PLAVIX [Suspect]
     Active Substance: CLOPIDOGREL BISULFATE
     Dosage: 1 DF, QD (75MG TABLET-1 TABLET TAKEN BY MOUTH DAILY)
     Route: 048

REACTIONS (2)
  - Pruritus [Unknown]
  - Burning sensation [Unknown]
